FAERS Safety Report 10704221 (Version 2)
Quarter: 2015Q1

REPORT INFORMATION
  Report Type: Report from Study
  Country: US (occurrence: US)
  Receive Date: 20150112
  Receipt Date: 20150127
  Transmission Date: 20150721
  Serious: Yes (Hospitalization)
  Sender: FDA-Public Use
  Company Number: US-SA-2015SA002491

PATIENT
  Age: 42 Year
  Sex: Male

DRUGS (1)
  1. LANTUS [Suspect]
     Active Substance: INSULIN GLARGINE
     Indication: TYPE 2 DIABETES MELLITUS
     Dosage: 50 UNIT A.M AND 60 U P.M
     Route: 065
     Dates: start: 2007

REACTIONS (4)
  - Blood glucose increased [Not Recovered/Not Resolved]
  - Testis cancer [Not Recovered/Not Resolved]
  - Leg amputation [Unknown]
  - Off label use [Unknown]

NARRATIVE: CASE EVENT DATE: 2007
